FAERS Safety Report 10599078 (Version 1)
Quarter: 2014Q4

REPORT INFORMATION
  Report Type: Spontaneous
  Country: CA (occurrence: CA)
  Receive Date: 20141121
  Receipt Date: 20141121
  Transmission Date: 20150529
  Serious: Yes (Life-Threatening)
  Sender: FDA-Public Use
  Company Number: CA-ABBVIE-14K-028-1310555-00

PATIENT
  Sex: Male

DRUGS (2)
  1. HUMIRA [Suspect]
     Active Substance: ADALIMUMAB
     Indication: ARTHRALGIA
  2. HUMIRA [Suspect]
     Active Substance: ADALIMUMAB
     Indication: PSORIASIS
     Route: 058
     Dates: start: 2007, end: 2012

REACTIONS (8)
  - Headache [Unknown]
  - Unevaluable event [Unknown]
  - Viral infection [Unknown]
  - Mass [Unknown]
  - Immunodeficiency [Unknown]
  - Bacterial infection [Unknown]
  - Encephalitis [Unknown]
  - Sinus disorder [Unknown]
